FAERS Safety Report 11509910 (Version 2)
Quarter: 2015Q4

REPORT INFORMATION
  Report Type: Spontaneous
  Country: US (occurrence: US)
  Receive Date: 20150915
  Receipt Date: 20151013
  Transmission Date: 20160304
  Serious: No
  Sender: FDA-Public Use
  Company Number: US-JNJFOC-20150812073

PATIENT
  Age: 9 Month
  Sex: Female
  Weight: 6.8 kg

DRUGS (4)
  1. INFANTS MOTRIN [Suspect]
     Active Substance: IBUPROFEN
     Indication: TEETHING
     Route: 048
  2. MOTRIN INFANTS [Suspect]
     Active Substance: IBUPROFEN
     Route: 048
  3. INFANTS MOTRIN [Suspect]
     Active Substance: IBUPROFEN
     Route: 048
  4. MOTRIN INFANTS [Suspect]
     Active Substance: IBUPROFEN
     Indication: TEETHING
     Route: 048
     Dates: start: 20150718

REACTIONS (2)
  - Product container issue [Unknown]
  - Wrong technique in product usage process [Unknown]
